FAERS Safety Report 6439700-0 (Version None)
Quarter: 2009Q4

REPORT INFORMATION
  Report Type: 
  Country: None (occurrence: None)
  Receive Date: 20091113
  Receipt Date: 20091105
  Transmission Date: 20100525
  Serious: Yes (Other)
  Sender: FDA-Public Use
  Company Number: GXKR2009CA12327

PATIENT
  Age: 49 Year
  Sex: Male

DRUGS (4)
  1. FLUVOXAMINE (NGX) [Suspect]
     Indication: DEPRESSION
     Dosage: 50 MG/DAY
     Route: 065
  2. FLUVOXAMINE (NGX) [Suspect]
     Indication: ANXIETY
     Dosage: 150 MG/DAY
     Route: 065
  3. CLOMIPRAMINE (NGX) [Suspect]
     Indication: DEPRESSION
     Dosage: 75 MG/DAY
     Route: 065
  4. CLOMIPRAMINE (NGX) [Suspect]
     Indication: ANXIETY

REACTIONS (5)
  - FLUID INTAKE RESTRICTION [None]
  - GRAND MAL CONVULSION [None]
  - HEADACHE [None]
  - HYPONATRAEMIA [None]
  - LETHARGY [None]
